FAERS Safety Report 9997170 (Version 2)
Quarter: 2014Q2

REPORT INFORMATION
  Report Type: Spontaneous
  Country: US (occurrence: US)
  Receive Date: 20140311
  Receipt Date: 20140508
  Transmission Date: 20141212
  Serious: No
  Sender: FDA-Public Use
  Company Number: US-TEVA-467627USA

PATIENT
  Age: 18 Year
  Sex: Female
  Weight: 89.44 kg

DRUGS (7)
  1. PARAGARD 380A [Suspect]
     Indication: CONTRACEPTION
     Route: 015
     Dates: start: 20140220, end: 20140304
  2. PARAGARD 380A [Suspect]
     Route: 015
     Dates: start: 20140401, end: 20140429
  3. METFORMIN [Concomitant]
     Indication: HYPERINSULINAEMIA
  4. ZOLOFT [Concomitant]
     Indication: ANXIETY DISORDER
  5. ZOLOFT [Concomitant]
     Indication: OBSESSIVE-COMPULSIVE DISORDER
  6. LORAZEPAM [Concomitant]
     Indication: ANXIETY DISORDER
  7. LORAZEPAM [Concomitant]
     Indication: OBSESSIVE-COMPULSIVE DISORDER

REACTIONS (3)
  - Muscle spasms [Recovered/Resolved]
  - Dyspareunia [Recovered/Resolved]
  - Device expulsion [Recovered/Resolved]
